FAERS Safety Report 10009673 (Version 2)
Quarter: 2014Q1

REPORT INFORMATION
  Report Type: Spontaneous
  Country: US (occurrence: US)
  Receive Date: 20140312
  Receipt Date: 20140312
  Transmission Date: 20141002
  Serious: No
  Sender: FDA-Public Use
  Company Number: US-INCYTE CORPORATION-2012IN002242

PATIENT
  Age: 55 Year
  Sex: Female
  Weight: 65.76 kg

DRUGS (5)
  1. JAKAFI [Suspect]
     Indication: MYELOFIBROSIS
     Dosage: 10 MG, BID
     Route: 048
     Dates: start: 20120408
  2. NORVASC [Concomitant]
  3. ALLOPURINOL [Concomitant]
  4. PREVACID [Concomitant]
  5. HYCODAN [Concomitant]

REACTIONS (1)
  - Cough [Not Recovered/Not Resolved]
